FAERS Safety Report 9017250 (Version 1)
Quarter: 2013Q1

REPORT INFORMATION
  Report Type: Spontaneous
  Country: US (occurrence: US)
  Receive Date: 20130117
  Receipt Date: 20130117
  Transmission Date: 20140127
  Serious: No
  Sender: FDA-Public Use
  Company Number: US-PFIZER INC-2013015257

PATIENT
  Age: 66 Year
  Sex: Male
  Weight: 96.15 kg

DRUGS (6)
  1. OXAPROZIN [Suspect]
     Indication: BACK PAIN
     Dosage: 1200 MG, 1X/DAY
     Route: 048
     Dates: start: 2003
  2. CELECOXIB [Suspect]
     Indication: PAIN
     Dosage: UNK
  3. METFORMIN [Concomitant]
     Indication: TYPE 2 DIABETES MELLITUS
     Dosage: UNK
  4. OMEPRAZOLE [Concomitant]
     Indication: GASTROOESOPHAGEAL REFLUX DISEASE
     Dosage: UNK
  5. COREG [Concomitant]
     Indication: CARDIAC DISORDER
     Dosage: UNK
  6. LOVASTATIN [Concomitant]
     Dosage: UNK

REACTIONS (8)
  - Blood pressure increased [Unknown]
  - Cardiomyopathy [Unknown]
  - Cardiac disorder [Unknown]
  - Pain [Unknown]
  - Ulcer [Unknown]
  - Nervousness [Unknown]
  - Back pain [Unknown]
  - Gait disturbance [Unknown]
